FAERS Safety Report 10468802 (Version 3)
Quarter: 2015Q2

REPORT INFORMATION
  Report Type: Spontaneous
  Country: ES (occurrence: ES)
  Receive Date: 20140923
  Receipt Date: 20150506
  Transmission Date: 20150821
  Serious: Yes (Other)
  Sender: FDA-Public Use
  Company Number: ES-AMGEN-ESPSP2014071894

PATIENT
  Age: 60 Year
  Sex: Female

DRUGS (4)
  1. SERETIDE [Concomitant]
     Active Substance: FLUTICASONE FUROATE\SALMETEROL XINAFOATE
     Indication: ASTHMA
  2. PROLIA [Suspect]
     Active Substance: DENOSUMAB
     Indication: OSTEOPOROSIS POSTMENOPAUSAL
     Dosage: UNK UNK, Q6MO
     Route: 030
     Dates: start: 20120301
  3. LEXATIN                            /00424801/ [Concomitant]
     Active Substance: BROMAZEPAM
  4. CALCIUM [Concomitant]
     Active Substance: CALCIUM
     Dosage: 1500 MG, BID

REACTIONS (3)
  - Tooth disorder [Unknown]
  - Incorrect route of drug administration [Unknown]
  - Osteonecrosis of jaw [Recovering/Resolving]

NARRATIVE: CASE EVENT DATE: 20140707
